FAERS Safety Report 9269786 (Version 1)
Quarter: 2013Q2

REPORT INFORMATION
  Report Type: Report from Study
  Country: ES (occurrence: ES)
  Receive Date: 20130503
  Receipt Date: 20130503
  Transmission Date: 20140414
  Serious: Yes (Hospitalization)
  Sender: FDA-Public Use
  Company Number: ES-SANOFI-AVENTIS-2013SA043096

PATIENT
  Age: 80 Year
  Sex: Male

DRUGS (3)
  1. SEGURIL [Suspect]
     Indication: PRODUCT USED FOR UNKNOWN INDICATION
     Dosage: 1-1-0
     Route: 048
     Dates: start: 2013
  2. ALDACTONE [Suspect]
     Indication: CARDIAC FAILURE
     Dosage: 0-1-0
     Route: 048
     Dates: start: 2013, end: 20130307
  3. ENALAPRIL MALEATE [Suspect]
     Indication: PRODUCT USED FOR UNKNOWN INDICATION
     Dosage: 2-0-2
     Route: 048
     Dates: start: 2013

REACTIONS (2)
  - Hyperkalaemia [Recovering/Resolving]
  - Hyponatraemia [Recovering/Resolving]
